FAERS Safety Report 17173893 (Version 2)
Quarter: 2020Q1

REPORT INFORMATION
  Report Type: Spontaneous
  Country: US (occurrence: US)
  Receive Date: 20191219
  Receipt Date: 20200121
  Transmission Date: 20200409
  Serious: No
  Sender: FDA-Public Use
  Company Number: US-PFIZER INC-2018003001

PATIENT
  Age: 80 Year
  Sex: Female
  Weight: 74.83 kg

DRUGS (1)
  1. TIKOSYN [Suspect]
     Active Substance: DOFETILIDE
     Indication: ATRIAL FIBRILLATION
     Dosage: 500 UG, 2X/DAY
     Dates: start: 1995

REACTIONS (1)
  - Gingival swelling [Recovered/Resolved]

NARRATIVE: CASE EVENT DATE: 20191110
